FAERS Safety Report 7630441-0 (Version None)
Quarter: 2011Q3

REPORT INFORMATION
  Report Type: 
  Country: None (occurrence: None)
  Receive Date: 20110722
  Receipt Date: 20110715
  Transmission Date: 20111222
  Serious: Yes (Other)
  Sender: FDA-Public Use
  Company Number: IT-GLAXOSMITHKLINE-B0734424A

PATIENT
  Sex: Male

DRUGS (2)
  1. FENOBARBITAL [Concomitant]
     Dates: start: 20051211, end: 20110323
  2. LAMICTAL [Suspect]
     Indication: PRODUCT USED FOR UNKNOWN INDICATION
     Dosage: 25MG PER DAY
     Route: 048
     Dates: start: 20110318, end: 20110323

REACTIONS (2)
  - EPILEPSY [None]
  - HYPERPYREXIA [None]
